FAERS Safety Report 16464927 (Version 5)
Quarter: 2019Q3

REPORT INFORMATION
  Report Type: Spontaneous
  Country: US (occurrence: US)
  Receive Date: 20190621
  Receipt Date: 20190910
  Transmission Date: 20191004
  Serious: Yes (Hospitalization, Other)
  Sender: FDA-Public Use
  Company Number: PHEH2019US025576

PATIENT
  Age: 47 Year
  Sex: Male
  Weight: 49.43 kg

DRUGS (2)
  1. AFINITOR [Suspect]
     Active Substance: EVEROLIMUS
     Indication: THYROID CANCER
     Dosage: 5 MG, QD
     Route: 048
     Dates: start: 201906
  2. LENVATINIB [Suspect]
     Active Substance: LENVATINIB
     Indication: THYROID CANCER
     Dosage: 18 MG, QD
     Route: 048
     Dates: start: 201906

REACTIONS (10)
  - Vomiting [Unknown]
  - Pulmonary embolism [Unknown]
  - Rib fracture [Recovered/Resolved with Sequelae]
  - Diarrhoea [Recovered/Resolved]
  - Deep vein thrombosis [Unknown]
  - Pain [Unknown]
  - Yellow skin [Unknown]
  - Product use in unapproved indication [Unknown]
  - Metastases to bone [Unknown]
  - Nausea [Unknown]

NARRATIVE: CASE EVENT DATE: 201906
